FAERS Safety Report 10579068 (Version 1)
Quarter: 2014Q4

REPORT INFORMATION
  Report Type: Report from Study
  Country: US (occurrence: US)
  Receive Date: 20141112
  Receipt Date: 20141112
  Transmission Date: 20150529
  Serious: Yes (Hospitalization)
  Sender: FDA-Public Use
  Company Number: PHEH2014US022411

PATIENT
  Sex: Female

DRUGS (1)
  1. TOBI PODHALER [Suspect]
     Active Substance: TOBRAMYCIN
     Indication: PRODUCT USED FOR UNKNOWN INDICATION
     Dosage: 4 DF, BID (INHALE CONTENTS OF 4 CAPSULES TWICE DAILY EVERY OTHER MONTH)
     Route: 055

REACTIONS (3)
  - Infection [Unknown]
  - Chest discomfort [Unknown]
  - Hypersensitivity [Unknown]
